FAERS Safety Report 7342169-5 (Version None)
Quarter: 2011Q1

REPORT INFORMATION
  Report Type: 
  Country: None (occurrence: None)
  Receive Date: 20110309
  Receipt Date: 20110301
  Transmission Date: 20110831
  Serious: Yes (Other)
  Sender: FDA-Public Use
  Company Number: DE-ASTRAZENECA-2011SE10657

PATIENT
  Age: 88 Year
  Sex: Female

DRUGS (4)
  1. FENTANYL-100 [Concomitant]
     Indication: BACK PAIN
     Dosage: EVERY THREE DAYS
     Route: 062
  2. ASS 100 [Concomitant]
     Route: 048
  3. ISOSORBIDE DINITRATE [Concomitant]
     Indication: CORONARY ARTERY DISEASE
     Route: 048
  4. BRILIQUE [Suspect]
     Indication: ANGINA PECTORIS
     Route: 048
     Dates: start: 20110216, end: 20110217

REACTIONS (1)
  - DYSPNOEA [None]
